FAERS Safety Report 9869480 (Version 2)
Quarter: 2014Q1

REPORT INFORMATION
  Report Type: Spontaneous
  Country: US (occurrence: US)
  Receive Date: 20140205
  Receipt Date: 20140224
  Transmission Date: 20141002
  Serious: No
  Sender: FDA-Public Use
  Company Number: US-PFIZER INC-2014028408

PATIENT
  Sex: Female
  Weight: 74.83 kg

DRUGS (6)
  1. PRISTIQ [Suspect]
     Indication: DEPRESSION
     Dosage: 50 MG, DAILY
  2. PRISTIQ [Suspect]
     Dosage: 100 MG, DAILY
  3. SEROQUEL XR [Concomitant]
     Indication: AFFECTIVE DISORDER
     Dosage: 300 MG, 3X/DAY
  4. KLONOPIN [Concomitant]
     Indication: AFFECTIVE DISORDER
     Dosage: 1 MG, 3X/DAY
  5. DEPAKOTE [Concomitant]
     Indication: AFFECTIVE DISORDER
     Dosage: 500 MG, 2X/DAY
  6. PROVIGIL [Concomitant]
     Indication: AFFECTIVE DISORDER
     Dosage: 100 MG, DAILY

REACTIONS (4)
  - Drug intolerance [Recovering/Resolving]
  - Dry mouth [Recovering/Resolving]
  - Memory impairment [Unknown]
  - Treatment noncompliance [Unknown]
